FAERS Safety Report 17413626 (Version 1)
Quarter: 2020Q1

REPORT INFORMATION
  Report Type: Spontaneous
  Country: US (occurrence: US)
  Receive Date: 20200213
  Receipt Date: 20200213
  Transmission Date: 20200409
  Serious: Yes (Other)
  Sender: FDA-Public Use
  Company Number: None

PATIENT
  Age: 30 Year
  Sex: Female
  Weight: 50.85 kg

DRUGS (3)
  1. TRINTELLIX [Concomitant]
     Active Substance: VORTIOXETINE HYDROBROMIDE
  2. B UPROPION HCL EXTENDED RELEASE TABLETS USP (XL) 300MG TB24 [Suspect]
     Active Substance: BUPROPION HYDROCHLORIDE
     Indication: DEPRESSION
     Dosage: ?          QUANTITY:1 TABLET(S);?
     Route: 048
     Dates: start: 20200127, end: 20200128
  3. BCOMPLEX [Concomitant]

REACTIONS (5)
  - Tachycardia [None]
  - Product substitution issue [None]
  - Anxiety [None]
  - Nausea [None]
  - Palpitations [None]

NARRATIVE: CASE EVENT DATE: 20200127
